FAERS Safety Report 6324339-8 (Version None)
Quarter: 2009Q3

REPORT INFORMATION
  Report Type: 
  Country: None (occurrence: None)
  Receive Date: 20090824
  Receipt Date: 20090427
  Transmission Date: 20100115
  Serious: Yes (Hospitalization)
  Sender: FDA-Public Use
  Company Number: US-ABBOTT-09P-163-0570114-00

PATIENT
  Sex: Male
  Weight: 79.45 kg

DRUGS (1)
  1. NIASPAN [Suspect]
     Indication: BLOOD TRIGLYCERIDES INCREASED
     Dates: start: 20071001

REACTIONS (4)
  - FLUSHING [None]
  - HYPERHIDROSIS [None]
  - HYPOAESTHESIA [None]
  - PAIN IN EXTREMITY [None]
